FAERS Safety Report 8037938-2 (Version None)
Quarter: 2012Q1

REPORT INFORMATION
  Report Type: 
  Country: None (occurrence: None)
  Receive Date: 20120111
  Receipt Date: 20120104
  Transmission Date: 20120608
  Serious: Yes (Hospitalization, Other)
  Sender: FDA-Public Use
  Company Number: US-ASTRAZENECA-2011SE58960

PATIENT
  Age: 87 Year
  Sex: Female
  Weight: 59 kg

DRUGS (28)
  1. PANTOPRAZOLE [Concomitant]
  2. ROZEREM [Concomitant]
     Dates: start: 20060101
  3. VITAMIN OTC [Concomitant]
     Indication: ASTHMA
  4. SEROQUEL [Suspect]
     Route: 048
  5. AMLODIPINE [Concomitant]
  6. REMERON [Concomitant]
     Dates: start: 20060101
  7. VALPROIC ACID [Concomitant]
  8. SEROQUEL [Suspect]
     Route: 048
     Dates: start: 20030101
  9. LEVOTHYROXINE SODIUM [Concomitant]
     Dates: start: 19910101
  10. LORAZEPAM [Concomitant]
  11. IBUPROFEN [Concomitant]
     Indication: ASTHMA
     Dosage: AS REQUIRED
  12. RISPERIDONE [Concomitant]
     Dates: start: 20080101
  13. ARICEPT [Concomitant]
     Dates: start: 20060101
  14. FLOVENT [Concomitant]
     Dosage: 110 MCG 2 PUFF BID
  15. TENATOPRAZOLE [Concomitant]
  16. SEROQUEL [Suspect]
     Dosage: 25 MG IN THE MORNING 200 MG AT NIGHT
     Route: 048
  17. DONEPEZIL HCL [Concomitant]
  18. RISPERIDONE [Concomitant]
     Dates: start: 20060101
  19. NAMENDA [Concomitant]
     Dates: start: 20060101
  20. ASPIRIN [Concomitant]
     Dosage: 0.81 MG
  21. NAMENDA [Concomitant]
  22. REMERON [Concomitant]
  23. VALPROIC ACID [Concomitant]
  24. ACETAMINOPHEN [Concomitant]
     Dosage: 500 MG
  25. SEROQUEL [Suspect]
     Indication: BIPOLAR DISORDER
     Route: 048
  26. DONEPEZIL HCL [Concomitant]
     Dates: start: 20100101
  27. ASPIRIN [Concomitant]
     Dosage: QAM
  28. STOOL SOFTNER OTC [Concomitant]
     Dosage: AS REQUIRED

REACTIONS (10)
  - HIP FRACTURE [None]
  - BEDRIDDEN [None]
  - PNEUMONIA [None]
  - DECUBITUS ULCER [None]
  - FALL [None]
  - DYSGRAPHIA [None]
  - CONSTIPATION [None]
  - URINARY TRACT INFECTION [None]
  - DEMENTIA ALZHEIMER'S TYPE [None]
  - ARTHRITIS [None]
